FAERS Safety Report 17432789 (Version 2)
Quarter: 2020Q1

REPORT INFORMATION
  Report Type: Spontaneous
  Country: TR (occurrence: TR)
  Receive Date: 20200218
  Receipt Date: 20200227
  Transmission Date: 20200409
  Serious: Yes (Other)
  Sender: FDA-Public Use
  Company Number: TR-ALEXION PHARMACEUTICALS INC-A202002198

PATIENT
  Age: 14 Year
  Sex: Male

DRUGS (2)
  1. SOLIRIS [Suspect]
     Active Substance: ECULIZUMAB
     Indication: PRODUCT USED FOR UNKNOWN INDICATION
     Dosage: 1200 MG, Q2W
     Route: 065
  2. SOLIRIS [Suspect]
     Active Substance: ECULIZUMAB
     Dosage: UNK UNK, QMONTH
     Route: 065

REACTIONS (5)
  - Drug ineffective [Unknown]
  - Nephropathy [Unknown]
  - C3 glomerulopathy [Unknown]
  - Blood creatinine increased [Unknown]
  - Renal failure [Unknown]
